FAERS Safety Report 6219924-8 (Version None)
Quarter: 2009Q2

REPORT INFORMATION
  Report Type: 
  Country: None (occurrence: None)
  Receive Date: 20090609
  Receipt Date: 20090529
  Transmission Date: 20091009
  Serious: Yes (Other)
  Sender: FDA-Public Use
  Company Number: FR-JNJFOC-20090600606

PATIENT
  Age: 60 Year
  Sex: Female

DRUGS (1)
  1. REMICADE [Suspect]
     Indication: CROHN'S DISEASE
     Dosage: DURATION OF 1 YEAR
     Route: 042

REACTIONS (1)
  - MEMORY IMPAIRMENT [None]
